FAERS Safety Report 6070261-4 (Version None)
Quarter: 2009Q1

REPORT INFORMATION
  Report Type: 
  Country: None (occurrence: None)
  Receive Date: 20090209
  Receipt Date: 20090129
  Transmission Date: 20090719
  Serious: Yes (Hospitalization)
  Sender: FDA-Public Use
  Company Number: PHHO2008AR13850

PATIENT
  Sex: Female
  Weight: 63.5 kg

DRUGS (3)
  1. NEORAL [Suspect]
     Indication: HEART TRANSPLANT
  2. CERTICAN [Suspect]
     Indication: HEART TRANSPLANT
     Dosage: UNK
     Route: 048
     Dates: start: 20081027
  3. THEOPHYLLINE (TEOFILIN) [Suspect]
     Indication: BRADYCARDIA

REACTIONS (16)
  - ASCITES [None]
  - ATRIAL FIBRILLATION [None]
  - CARDIAC DISORDER [None]
  - CARDIAC FAILURE CONGESTIVE [None]
  - CARDIOVERSION [None]
  - DILATATION VENTRICULAR [None]
  - DYSPNOEA [None]
  - HEPATOSPLENOMEGALY [None]
  - MITRAL VALVE INCOMPETENCE [None]
  - OEDEMA [None]
  - OLIGURIA [None]
  - PLEURAL EFFUSION [None]
  - POST PROCEDURAL HAEMATOMA [None]
  - RENAL IMPAIRMENT [None]
  - TACHYCARDIA [None]
  - TRICUSPID VALVE INCOMPETENCE [None]
